FAERS Safety Report 5763826-8 (Version None)
Quarter: 2008Q2

REPORT INFORMATION
  Report Type: 
  Country: None (occurrence: None)
  Receive Date: 20080606
  Receipt Date: 20080606
  Transmission Date: 20081010
  Serious: No
  Sender: FDA-Public Use
  Company Number: None

PATIENT
  Sex: Female
  Weight: 50 kg

DRUGS (1)
  1. CEFAZOLIN [Suspect]
     Indication: BACTERAEMIA
     Dosage: 2GM Q8H IV
     Route: 042
     Dates: start: 20080513, end: 20080516

REACTIONS (2)
  - RASH ERYTHEMATOUS [None]
  - URTICARIA [None]
